FAERS Safety Report 13386377 (Version 1)
Quarter: 2017Q1

REPORT INFORMATION
  Report Type: Spontaneous
  Country: US (occurrence: US)
  Receive Date: 20170330
  Receipt Date: 20170330
  Transmission Date: 20170429
  Serious: No
  Sender: FDA-Public Use
  Company Number: US-MYLANLABS-2017M1005815

PATIENT
  Sex: Female
  Weight: 59.41 kg

DRUGS (1)
  1. AMLODIPINE [Suspect]
     Active Substance: AMLODIPINE BESYLATE
     Indication: HYPERTENSION
     Dosage: 5 MG, QD ( HALF TABLET IN AM AND FULL TABLET IN PM)
     Route: 048

REACTIONS (5)
  - Pruritus generalised [Not Recovered/Not Resolved]
  - Swelling [Not Recovered/Not Resolved]
  - Skin disorder [Not Recovered/Not Resolved]
  - Skin haemorrhage [Not Recovered/Not Resolved]
  - Rash [Not Recovered/Not Resolved]
